FAERS Safety Report 13595654 (Version 2)
Quarter: 2019Q1

REPORT INFORMATION
  Report Type: Spontaneous
  Country: US (occurrence: US)
  Receive Date: 20170531
  Receipt Date: 20190201
  Transmission Date: 20190417
  Serious: No
  Sender: FDA-Public Use
  Company Number: US-JNJFOC-20170428079

PATIENT
  Age: 6 Decade
  Sex: Female

DRUGS (2)
  1. MOTRIN IB [Suspect]
     Active Substance: IBUPROFEN
     Route: 048
  2. MOTRIN IB [Suspect]
     Active Substance: IBUPROFEN
     Indication: BACK PAIN
     Dosage: FOR ABOUT 3-4 DAYS
     Route: 048

REACTIONS (2)
  - Incorrect dose administered [Recovered/Resolved]
  - Abdominal discomfort [Recovered/Resolved]
